FAERS Safety Report 9448961 (Version 2)
Quarter: 2013Q3

REPORT INFORMATION
  Report Type: Report from Study
  Country: US (occurrence: US)
  Receive Date: 20130808
  Receipt Date: 20130904
  Transmission Date: 20140515
  Serious: Yes (Hospitalization)
  Sender: FDA-Public Use
  Company Number: US-ALEXION-A201301805

PATIENT
  Age: 3 Year
  Sex: Female

DRUGS (5)
  1. ECULIZUMAB [Suspect]
     Indication: HAEMOLYTIC URAEMIC SYNDROME
     Dosage: 300 MG IN 60 MLS OF 5% DEXTROSE, Q2W
     Route: 042
  2. AMLODIPINE [Concomitant]
     Dosage: 1-5 MG, QD
  3. LISINOPRIL [Concomitant]
     Dosage: 2 MG, QD
  4. AMOXICILLIN [Concomitant]
     Dosage: 12.5 MG, QD
  5. ERYTHROPOIETIN [Concomitant]
     Dosage: 2000 UNITS Q2W

REACTIONS (1)
  - Viral infection [Recovered/Resolved]
